FAERS Safety Report 26030774 (Version 1)
Quarter: 2025Q4

REPORT INFORMATION
  Report Type: Spontaneous
  Country: US (occurrence: US)
  Receive Date: 20251112
  Receipt Date: 20251112
  Transmission Date: 20260117
  Serious: No
  Sender: ALEXION PHARMACEUTICALS
  Company Number: US-AstraZeneca-CH-00988478A

PATIENT
  Sex: Female

DRUGS (1)
  1. LOKELMA [Suspect]
     Active Substance: SODIUM ZIRCONIUM CYCLOSILICATE
     Route: 065

REACTIONS (6)
  - Glomerular filtration rate abnormal [Unknown]
  - Joint swelling [Unknown]
  - Anaemia [Unknown]
  - Blood potassium decreased [Unknown]
  - Arthralgia [Unknown]
  - Therapy cessation [Unknown]
